FAERS Safety Report 18101938 (Version 1)
Quarter: 2020Q3

REPORT INFORMATION
  Report Type: Report from Study
  Country: None (occurrence: NL)
  Receive Date: 20200802
  Receipt Date: 20200802
  Transmission Date: 20201103
  Serious: Yes (Other)
  Sender: FDA-Public Use
  Company Number: NL-ABBVIE-19S-114-2773131-00

PATIENT
  Sex: Male
  Weight: 63 kg

DRUGS (8)
  1. DUODOPA [Suspect]
     Active Substance: CARBIDOPA\LEVODOPA
     Dosage: MD: 7; CD: 3.7; ED: 2 REMAINS AT 16 HR
     Route: 050
  2. MADOPAR [Concomitant]
     Active Substance: BENSERAZIDE HYDROCHLORIDE\LEVODOPA
     Indication: PRODUCT USED FOR UNKNOWN INDICATION
  3. RIVASTIGMINE. [Concomitant]
     Active Substance: RIVASTIGMINE
     Indication: PRODUCT USED FOR UNKNOWN INDICATION
  4. DUODOPA [Suspect]
     Active Substance: CARBIDOPA\LEVODOPA
     Indication: PARKINSON^S DISEASE
     Dosage: MD 5.5??CD 3.6??ED 2.0
     Route: 050
  5. MACROGOL [Concomitant]
     Active Substance: POLYETHYLENE GLYCOLS
     Indication: PRODUCT USED FOR UNKNOWN INDICATION
     Dosage: 1/2 BAG DAILY, SOMETIMES 2X DAILY AND SOMETIMES EVERY OTHER DAY.
  6. NUTRIDRINK [Concomitant]
     Active Substance: CARBOHYDRATES\FATTY ACIDS\MINERALS\PROTEIN\VITAMINS
     Indication: PRODUCT USED FOR UNKNOWN INDICATION
     Dosage: 1 BOTTLE OF NUTRIDRINK PER DAY
  7. FANTONAL [Concomitant]
     Indication: PRODUCT USED FOR UNKNOWN INDICATION
  8. CALOGEN [Concomitant]
     Indication: PRODUCT USED FOR UNKNOWN INDICATION
     Dosage: CALOGEN 3 X 30 ML DAILY

REACTIONS (32)
  - Stereotypy [Not Recovered/Not Resolved]
  - Dementia [Not Recovered/Not Resolved]
  - Stoma site erythema [Recovered/Resolved]
  - Sensory disturbance [Not Recovered/Not Resolved]
  - Confusional state [Not Recovered/Not Resolved]
  - Therapeutic product effect decreased [Unknown]
  - Dysuria [Unknown]
  - Dystonia [Not Recovered/Not Resolved]
  - Somnolence [Not Recovered/Not Resolved]
  - Somnolence [Recovered/Resolved]
  - On and off phenomenon [Not Recovered/Not Resolved]
  - Cognitive disorder [Not Recovered/Not Resolved]
  - Fatigue [Not Recovered/Not Resolved]
  - Nightmare [Not Recovered/Not Resolved]
  - Hallucination, visual [Not Recovered/Not Resolved]
  - Memory impairment [Not Recovered/Not Resolved]
  - Impaired self-care [Not Recovered/Not Resolved]
  - Muscle rigidity [Not Recovered/Not Resolved]
  - General physical condition abnormal [Not Recovered/Not Resolved]
  - Decreased appetite [Not Recovered/Not Resolved]
  - Freezing phenomenon [Not Recovered/Not Resolved]
  - Musculoskeletal stiffness [Not Recovered/Not Resolved]
  - Bradyphrenia [Not Recovered/Not Resolved]
  - Fibroma [Recovered/Resolved]
  - Gait disturbance [Not Recovered/Not Resolved]
  - Insomnia [Recovered/Resolved]
  - Dyskinesia [Recovering/Resolving]
  - Stoma site discharge [Recovered/Resolved]
  - Malignant melanoma [Unknown]
  - Speech disorder [Not Recovered/Not Resolved]
  - Weight gain poor [Not Recovered/Not Resolved]
  - Feeling abnormal [Not Recovered/Not Resolved]
